FAERS Safety Report 5189909-1 (Version None)
Quarter: 2006Q4

REPORT INFORMATION
  Report Type: 
  Country: None (occurrence: None)
  Receive Date: 20061215
  Receipt Date: 20061204
  Transmission Date: 20070319
  Serious: Yes (Disabling)
  Sender: FDA-Public Use
  Company Number: CERZ-11422

PATIENT
  Age: 49 Year
  Sex: Male

DRUGS (1)
  1. CEREZYME [Suspect]
     Indication: GAUCHER'S DISEASE
     Dosage: 60 U/KG Q2WKS IV
     Route: 042

REACTIONS (12)
  - CEREBELLAR SYNDROME [None]
  - DEPRESSION [None]
  - DISEASE PROGRESSION [None]
  - DYSPHAGIA [None]
  - DYSTONIA [None]
  - IMPAIRED SELF-CARE [None]
  - MEMORY IMPAIRMENT [None]
  - NEUROLOGICAL SYMPTOM [None]
  - NUCHAL RIGIDITY [None]
  - PSEUDODEMENTIA [None]
  - SENSORY LOSS [None]
  - TREMOR [None]
